FAERS Safety Report 10158192 (Version 1)
Quarter: 2014Q2

REPORT INFORMATION
  Report Type: Spontaneous
  Country: US (occurrence: US)
  Receive Date: 20140507
  Receipt Date: 20140507
  Transmission Date: 20141212
  Serious: Yes (Other)
  Sender: FDA-Public Use
  Company Number: US-ACTAVIS-2014-09325

PATIENT
  Age: 51 Year
  Sex: Female

DRUGS (4)
  1. GLYBURIDE (ATLLC) [Suspect]
     Indication: TYPE 2 DIABETES MELLITUS
     Dosage: UNK
     Route: 065
  2. OCTREOTIDE [Suspect]
     Indication: OFF LABEL USE
     Dosage: 50 ?G, Q4H
     Route: 042
  3. OCTREOTIDE (UNKNOWN) [Suspect]
     Indication: HYPOGLYCAEMIA
  4. METFORMIN [Concomitant]
     Indication: TYPE 2 DIABETES MELLITUS
     Dosage: UNK
     Route: 065

REACTIONS (2)
  - Hypoglycaemia [Recovered/Resolved]
  - Off label use [Recovered/Resolved]
